FAERS Safety Report 9525259 (Version 3)
Quarter: 2014Q2

REPORT INFORMATION
  Report Type: Spontaneous
  Country: US (occurrence: US)
  Receive Date: 20130916
  Receipt Date: 20140509
  Transmission Date: 20141212
  Serious: Yes (Hospitalization, Other)
  Sender: FDA-Public Use
  Company Number: US-BAYER-2013-110535

PATIENT
  Age: 35 Year
  Sex: Female
  Weight: 73.47 kg

DRUGS (10)
  1. YAZ [Suspect]
     Indication: MENSTRUAL DISORDER
     Dosage: UNK
     Dates: start: 201105, end: 2012
  2. RANITIDINE [Concomitant]
     Dosage: 150 MG, UNK
  3. AMOXICILLIN [Concomitant]
     Dosage: 500 MG, UNK
  4. PREDNISONE [Concomitant]
     Dosage: 20 MG, UNK
  5. ONDANSETRON [Concomitant]
     Dosage: 4 MG, UNK
  6. ZOLOFT [Concomitant]
  7. SYNTHROID [Concomitant]
  8. ANTIVERT [Concomitant]
  9. LEVAQUIN [Concomitant]
  10. ZOFRAN [Concomitant]

REACTIONS (6)
  - Pulmonary embolism [Recovered/Resolved]
  - Pain [Recovered/Resolved]
  - Fear of disease [None]
  - Injury [Recovered/Resolved]
  - Pain [None]
  - Pulmonary infarction [None]
